FAERS Safety Report 10249309 (Version 1)
Quarter: 2014Q2

REPORT INFORMATION
  Report Type: Spontaneous
  Country: US (occurrence: US)
  Receive Date: 20140620
  Receipt Date: 20140620
  Transmission Date: 20141212
  Serious: No
  Sender: FDA-Public Use
  Company Number: US-ASTRAZENECA-2014SE40920

PATIENT
  Age: 50 Year
  Sex: Female
  Weight: 108.9 kg

DRUGS (1)
  1. CRESTOR [Suspect]
     Indication: HYPERLIPIDAEMIA
     Route: 048
     Dates: start: 2011, end: 2014

REACTIONS (3)
  - Musculoskeletal stiffness [Recovering/Resolving]
  - Parkinson^s disease [Unknown]
  - Musculoskeletal pain [Recovering/Resolving]
